FAERS Safety Report 8494098-1 (Version None)
Quarter: 2012Q3

REPORT INFORMATION
  Report Type: 
  Country: None (occurrence: None)
  Receive Date: 20120702
  Receipt Date: 20120702
  Transmission Date: 20120928
  Serious: Yes (Hospitalization)
  Sender: FDA-Public Use
  Company Number: None

PATIENT
  Age: 32 Year
  Sex: Female
  Weight: 86.1834 kg

DRUGS (1)
  1. EFFEXOR XR [Suspect]
     Indication: DEPRESSION
     Dosage: 150 MG ONE DAILY PO
     Route: 048
     Dates: start: 20120628, end: 20120630

REACTIONS (12)
  - DRUG WITHDRAWAL SYNDROME [None]
  - PAIN [None]
  - FEELING OF DESPAIR [None]
  - NIGHTMARE [None]
  - ASTHENIA [None]
  - UNEVALUABLE EVENT [None]
  - SUICIDAL IDEATION [None]
  - TREMOR [None]
  - AGITATION [None]
  - INSOMNIA [None]
  - DIZZINESS [None]
  - RESTLESSNESS [None]
